FAERS Safety Report 8915987 (Version 1)
Quarter: 2012Q4

REPORT INFORMATION
  Report Type: 
  Country: US (occurrence: US)
  Receive Date: 20121119
  Receipt Date: 20121119
  Transmission Date: 20130627
  Serious: Yes (Other)
  Sender: FDA-Public Use
  Company Number: US-GLAXOSMITHKLINE-A1001283A

PATIENT
  Age: 15 Year
  Sex: Male

DRUGS (2)
  1. POTIGA [Suspect]
     Indication: EPILEPSY
     Route: 048
     Dates: start: 201211, end: 201211
  2. UNKNOWN [Concomitant]

REACTIONS (2)
  - Urinary retention [Recovered/Resolved]
  - Off label use [Unknown]
